FAERS Safety Report 6569243-5 (Version None)
Quarter: 2010Q1

REPORT INFORMATION
  Report Type: 
  Country: None (occurrence: None)
  Receive Date: 20100201
  Receipt Date: 20100201
  Transmission Date: 20100710
  Serious: Yes (Life-Threatening)
  Sender: FDA-Public Use
  Company Number: None

PATIENT
  Sex: Female
  Weight: 99.8 kg

DRUGS (3)
  1. RITUXAN [Suspect]
  2. ARAVA [Concomitant]
  3. PLAQUENIL [Concomitant]

REACTIONS (2)
  - BRADYCARDIA [None]
  - INFUSION RELATED REACTION [None]
